FAERS Safety Report 16713153 (Version 3)
Quarter: 2023Q1

REPORT INFORMATION
  Report Type: Spontaneous
  Country: US (occurrence: US)
  Receive Date: 20190817
  Receipt Date: 20230215
  Transmission Date: 20230418
  Serious: No
  Sender: FDA-Public Use
  Company Number: US-BIOGEN-2017BI00498164

PATIENT
  Age: 69 Year
  Sex: Male

DRUGS (4)
  1. AVONEX PEN [Suspect]
     Active Substance: INTERFERON BETA-1A
     Indication: Multiple sclerosis
     Route: 050
  2. AVONEX PEN [Suspect]
     Active Substance: INTERFERON BETA-1A
  3. AVONEX PEN [Suspect]
     Active Substance: INTERFERON BETA-1A
  4. AVONEX PEN [Suspect]
     Active Substance: INTERFERON BETA-1A

REACTIONS (8)
  - Multiple sclerosis [Not Recovered/Not Resolved]
  - Musculoskeletal disorder [Unknown]
  - Prostatic disorder [Unknown]
  - Headache [Unknown]
  - Road traffic accident [Recovered/Resolved]
  - Neck injury [Unknown]
  - Bladder disorder [Unknown]
  - Back injury [Unknown]

NARRATIVE: CASE EVENT DATE: 20210420
